FAERS Safety Report 13313566 (Version 6)
Quarter: 2019Q1

REPORT INFORMATION
  Report Type: Spontaneous
  Country: US (occurrence: US)
  Receive Date: 20170309
  Receipt Date: 20190116
  Transmission Date: 20190417
  Serious: Yes (Other)
  Sender: FDA-Public Use
  Company Number: US-PFIZER INC-2017099521

PATIENT
  Age: 49 Year
  Sex: Male
  Weight: 95.25 kg

DRUGS (2)
  1. GENOTROPIN MQ [Suspect]
     Active Substance: SOMATROPIN
     Dosage: 0.6 MG, DAILY
  2. GENOTROPIN MQ [Suspect]
     Active Substance: SOMATROPIN
     Dosage: UNK, DAILY (0.6 UNK)
     Dates: start: 201401, end: 20180402

REACTIONS (13)
  - Product dose omission [Unknown]
  - Alanine aminotransferase increased [Unknown]
  - Fracture [Unknown]
  - Malaise [Unknown]
  - Blood thyroid stimulating hormone decreased [Unknown]
  - Insulin-like growth factor increased [Unknown]
  - Tri-iodothyronine increased [Unknown]
  - Thyroxine decreased [Unknown]
  - Glomerular filtration rate decreased [Unknown]
  - Red cell distribution width increased [Unknown]
  - Mean cell volume decreased [Unknown]
  - Road traffic accident [Unknown]
  - Blood testosterone increased [Unknown]

NARRATIVE: CASE EVENT DATE: 201610
